FAERS Safety Report 10063387 (Version 1)
Quarter: 2014Q2

REPORT INFORMATION
  Report Type: Spontaneous
  Country: TW (occurrence: TW)
  Receive Date: 20140407
  Receipt Date: 20140407
  Transmission Date: 20141212
  Serious: Yes (Other)
  Sender: FDA-Public Use
  Company Number: TW-ACTAVIS-2014-06409

PATIENT
  Age: 76 Year
  Sex: Male

DRUGS (5)
  1. PREDNISOLONE (UNKNOWN) [Suspect]
     Indication: PEMPHIGUS
     Dosage: 90 MG, DAILY
     Route: 048
  2. PREDNISOLONE (UNKNOWN) [Suspect]
     Dosage: 20 MG, DAILY
     Route: 065
  3. PREDNISOLONE (UNKNOWN) [Suspect]
     Dosage: UNK
  4. CLOBETASOL [Suspect]
     Indication: PEMPHIGUS
     Dosage: 0.05%
     Route: 061
  5. RITUXIMAB [Suspect]
     Indication: PEMPHIGUS
     Dosage: 500 MG, 1/WEEK
     Route: 051

REACTIONS (4)
  - Pneumonia [Unknown]
  - Bacteraemia [Unknown]
  - Cytomegalovirus infection [Recovered/Resolved]
  - Herpes simplex [Unknown]
